FAERS Safety Report 15466806 (Version 1)
Quarter: 2018Q4

REPORT INFORMATION
  Report Type: Report from Study
  Country: US (occurrence: US)
  Receive Date: 20181005
  Receipt Date: 20181005
  Transmission Date: 20190204
  Serious: Yes (Other)
  Sender: FDA-Public Use
  Company Number: US-ROCHE-2194143

PATIENT
  Sex: Male
  Weight: 17.2 kg

DRUGS (1)
  1. NUTROPIN AQ [Suspect]
     Active Substance: SOMATROPIN
     Indication: HYPOPITUITARISM
     Route: 058
     Dates: start: 201704

REACTIONS (3)
  - Seizure [Unknown]
  - Haemorrhage [Unknown]
  - Epiphyses delayed fusion [Unknown]
